FAERS Safety Report 4481370-5 (Version None)
Quarter: 2004Q3

REPORT INFORMATION
  Report Type: 
  Country: None (occurrence: None)
  Receive Date: 20040923
  Receipt Date: 20040603
  Transmission Date: 20050211
  Serious: No
  Sender: FDA-Public Use
  Company Number: USA031050990

PATIENT
  Age: 71 Year
  Sex: Female
  Weight: 59 kg

DRUGS (4)
  1. FORTEO [Suspect]
     Indication: OSTEOPOROSIS
     Dosage: 20 UG DAY
     Dates: start: 20031015
  2. CALCIUM [Concomitant]
  3. VITAMINS NOS [Concomitant]
  4. VIOXX [Concomitant]

REACTIONS (10)
  - ACCIDENTAL NEEDLE STICK [None]
  - HAEMORRHAGE [None]
  - INFECTION [None]
  - INJECTION SITE ERYTHEMA [None]
  - INJECTION SITE HAEMORRHAGE [None]
  - INJECTION SITE NODULE [None]
  - JOINT SWELLING [None]
  - MUSCLE CRAMP [None]
  - PAIN IN EXTREMITY [None]
  - RASH [None]
